FAERS Safety Report 4446193-1 (Version None)
Quarter: 2004Q3

REPORT INFORMATION
  Report Type: 
  Country: None (occurrence: None)
  Receive Date: 20040903
  Receipt Date: 20040830
  Transmission Date: 20050211
  Serious: Yes (Hospitalization)
  Sender: FDA-Public Use
  Company Number: KII-2001-0009852

PATIENT
  Age: 80 Year

DRUGS (1)
  1. OXYCONTIN [Suspect]
     Dosage: 40 MG

REACTIONS (2)
  - MEDICATION ERROR [None]
  - RESPIRATORY RATE DECREASED [None]
